FAERS Safety Report 7375976-3 (Version None)
Quarter: 2011Q1

REPORT INFORMATION
  Report Type: 
  Country: None (occurrence: None)
  Receive Date: 20110325
  Receipt Date: 20110315
  Transmission Date: 20110831
  Serious: Yes (Other)
  Sender: FDA-Public Use
  Company Number: PHHY2010US86563

PATIENT
  Sex: Female
  Weight: 49.887 kg

DRUGS (4)
  1. VICODIN [Concomitant]
     Indication: MUSCLE SPASMS
     Dosage: UNK
  2. NITROFURANTOIN [Concomitant]
     Indication: PROPHYLAXIS
     Dosage: UNK, QD
  3. FAMPRIDINE [Concomitant]
     Indication: ATAXIA
     Dosage: 10 MG, UNK
  4. GILENYA [Suspect]
     Indication: MULTIPLE SCLEROSIS
     Dosage: 0.5 MG, QD
     Route: 048
     Dates: start: 20101214

REACTIONS (14)
  - NASOPHARYNGITIS [None]
  - MICTURITION URGENCY [None]
  - CHEST PAIN [None]
  - HEART RATE DECREASED [None]
  - BLOOD PRESSURE DECREASED [None]
  - CLUMSINESS [None]
  - SLOW RESPONSE TO STIMULI [None]
  - NECK PAIN [None]
  - URINARY INCONTINENCE [None]
  - INSOMNIA [None]
  - MYALGIA [None]
  - MUSCLE SPASMS [None]
  - BRADYPHRENIA [None]
  - BACK PAIN [None]
